FAERS Safety Report 12953513 (Version 3)
Quarter: 2019Q3

REPORT INFORMATION
  Report Type: Spontaneous
  Country: JP (occurrence: JP)
  Receive Date: 20161117
  Receipt Date: 20190916
  Transmission Date: 20191004
  Serious: Yes (Death, Disabling, Other)
  Sender: FDA-Public Use
  Company Number: JP-CELGENEUS-JPN-2015022180

PATIENT
  Age: 67 Year
  Sex: Female
  Weight: 54 kg

DRUGS (2)
  1. ABRAXANE [Suspect]
     Active Substance: PACLITAXEL
     Indication: BREAST CANCER
     Dosage: 400 MILLIGRAM
     Route: 041
     Dates: start: 20130528, end: 20130710
  2. GENERAL ANAESTHESIA [Concomitant]
     Indication: PRODUCT USED FOR UNKNOWN INDICATION
     Route: 065
     Dates: start: 20130925, end: 20130925

REACTIONS (10)
  - Scleroderma [Fatal]
  - Fibrosis [Unknown]
  - Generalised oedema [Unknown]
  - Extremity contracture [Unknown]
  - Hypoalbuminaemia [Unknown]
  - Pericardial effusion [Unknown]
  - Renal failure [Fatal]
  - Oedema peripheral [Unknown]
  - Anaemia [Unknown]
  - Pleural effusion [Unknown]

NARRATIVE: CASE EVENT DATE: 201306
